FAERS Safety Report 15956733 (Version 3)
Quarter: 2019Q2

REPORT INFORMATION
  Report Type: Spontaneous
  Country: US (occurrence: US)
  Receive Date: 20190213
  Receipt Date: 20190422
  Transmission Date: 20190711
  Serious: No
  Sender: FDA-Public Use
  Company Number: US-EMD SERONO-9070972

PATIENT
  Age: 60 Year
  Sex: Female

DRUGS (2)
  1. ASA [Concomitant]
     Active Substance: ASPIRIN
     Indication: CEREBROVASCULAR ACCIDENT
  2. REBIF [Suspect]
     Active Substance: INTERFERON BETA-1A
     Indication: MULTIPLE SCLEROSIS
     Route: 058
     Dates: start: 20180720

REACTIONS (7)
  - Spinal stenosis [Unknown]
  - Spinal osteoarthritis [Not Recovered/Not Resolved]
  - Visual impairment [Unknown]
  - Hypoaesthesia [Not Recovered/Not Resolved]
  - Injection site erythema [Unknown]
  - Vision blurred [Recovered/Resolved]
  - Initial insomnia [Unknown]

NARRATIVE: CASE EVENT DATE: 201809
